FAERS Safety Report 13239708 (Version 1)
Quarter: 2017Q1

REPORT INFORMATION
  Report Type: Spontaneous
  Country: US (occurrence: US)
  Receive Date: 20170216
  Receipt Date: 20170216
  Transmission Date: 20170428
  Serious: No
  Sender: FDA-Public Use
  Company Number: US-PFIZER INC-2017057266

PATIENT
  Sex: Female

DRUGS (1)
  1. XELJANZ XR [Suspect]
     Active Substance: TOFACITINIB CITRATE
     Dosage: 11 MG, UNK

REACTIONS (21)
  - Amnesia [Recovering/Resolving]
  - Joint range of motion decreased [Unknown]
  - Joint swelling [Unknown]
  - Oedema [Unknown]
  - Paraesthesia [Unknown]
  - Arthralgia [Unknown]
  - Sleep disorder [Unknown]
  - Night sweats [Unknown]
  - Myalgia [Unknown]
  - Paranasal sinus hypersecretion [Unknown]
  - Fatigue [Unknown]
  - Dry mouth [Unknown]
  - Dry eye [Unknown]
  - Crepitations [Unknown]
  - Muscle spasms [Unknown]
  - Alanine aminotransferase increased [Unknown]
  - Rash [Unknown]
  - Dyspnoea exertional [Unknown]
  - Neck pain [Unknown]
  - C-reactive protein abnormal [Recovering/Resolving]
  - Electrophoresis protein [Unknown]
